FAERS Safety Report 20096210 (Version 4)
Quarter: 2022Q1

REPORT INFORMATION
  Report Type: Report from Study
  Country: UA (occurrence: UA)
  Receive Date: 20211122
  Receipt Date: 20220210
  Transmission Date: 20220423
  Serious: Yes (Death, Life-Threatening, Hospitalization, Other)
  Sender: FDA-Public Use
  Company Number: UA-CELGENE-UKR-20211006753

PATIENT
  Age: 46 Year
  Sex: Male
  Weight: 63.3 kg

DRUGS (1)
  1. OZANIMOD [Suspect]
     Active Substance: OZANIMOD
     Indication: Relapsing multiple sclerosis
     Dosage: .92 MILLIGRAM
     Route: 048
     Dates: start: 20161126, end: 20211113

REACTIONS (2)
  - COVID-19 [Fatal]
  - Traumatic fracture [Not Recovered/Not Resolved]

NARRATIVE: CASE EVENT DATE: 20211020
